FAERS Safety Report 6970613-1 (Version None)
Quarter: 2010Q3

REPORT INFORMATION
  Report Type: 
  Country: None (occurrence: None)
  Receive Date: 20100908
  Receipt Date: 20100831
  Transmission Date: 20110219
  Serious: Yes (Death)
  Sender: FDA-Public Use
  Company Number: KR-BAYER-201038152GPV

PATIENT

DRUGS (10)
  1. CAMPATH [Suspect]
     Indication: PERIPHERAL T-CELL LYMPHOMA UNSPECIFIED RECURRENT
     Dosage: ONLY FOR THE FIRST CYCLE
     Route: 042
  2. CAMPATH [Suspect]
     Dosage: PER CYCLE, EVERY 3 WEEKS
     Route: 042
  3. CAMPATH [Suspect]
     Dosage: PER CYCLE, EVERY 3 WEEKS
     Route: 042
  4. DEXAMETHASONE [Suspect]
     Indication: PERIPHERAL T-CELL LYMPHOMA UNSPECIFIED RECURRENT
     Dosage: EVERY 3 WEEKS
     Route: 042
  5. CYTARABINE [Suspect]
     Indication: PERIPHERAL T-CELL LYMPHOMA UNSPECIFIED RECURRENT
     Dosage: EVERY 3 WEEKS
     Route: 042
  6. CISPLATIN [Suspect]
     Indication: PERIPHERAL T-CELL LYMPHOMA UNSPECIFIED RECURRENT
     Dosage: EVERY 3 WEEKS
     Route: 042
  7. ACETAMINOPHEN [Concomitant]
     Indication: PREMEDICATION
     Dosage: BEFORE EACH ALEMTUZUMAB DOSE
  8. CHLORPHENIRAMINE MALEATE [Concomitant]
     Indication: PREMEDICATION
     Dosage: BEFORE EACH ALEMTUZUMAB DOSE
  9. VALACYCLOVIR [Concomitant]
     Indication: INFECTION PROPHYLAXIS
     Dosage: THREE TIMES A WEEK, STARTING ON DAY 8 OF THE STUDY
  10. TRIMETHOPRIM + SULFAMETHOXAZOLE [Concomitant]
     Indication: INFECTION PROPHYLAXIS
     Dosage: THREE TIMES A WEEK, STARTING ON DAY 8 OF THE STUDY

REACTIONS (1)
  - TUMOUR LYSIS SYNDROME [None]
